FAERS Safety Report 12172732 (Version 1)
Quarter: 2016Q1

REPORT INFORMATION
  Report Type: Spontaneous
  Country: US (occurrence: US)
  Receive Date: 20160311
  Receipt Date: 20160311
  Transmission Date: 20160526
  Serious: Yes (Other)
  Sender: FDA-Public Use
  Company Number: US-PFIZER INC-2016150131

PATIENT
  Age: 28 Year
  Sex: Male
  Weight: 77 kg

DRUGS (2)
  1. VIAGRA [Suspect]
     Active Substance: SILDENAFIL CITRATE
     Dosage: 100 MG, 3X/DAY
  2. ADVIL [Concomitant]
     Active Substance: IBUPROFEN
     Indication: HEADACHE

REACTIONS (7)
  - Drug ineffective [Unknown]
  - Penile haemorrhage [Unknown]
  - Penis disorder [Unknown]
  - Intentional product use issue [Unknown]
  - Testicular haemorrhage [Unknown]
  - Testicular pain [Unknown]
  - Scrotal disorder [Unknown]
